FAERS Safety Report 23876106 (Version 1)
Quarter: 2024Q2

REPORT INFORMATION
  Report Type: Spontaneous
  Country: US (occurrence: US)
  Receive Date: 20240520
  Receipt Date: 20240520
  Transmission Date: 20240716
  Serious: No
  Sender: FDA-Public Use
  Company Number: US-IMP-2023000338

PATIENT
  Sex: Female

DRUGS (3)
  1. FRESHKOTE PRESERVATIVE FREE LUBRICATING EYE DROPS [Suspect]
     Active Substance: POLYVINYL ALCOHOL\POVIDONE
     Indication: Dry eye
     Dosage: ONE TO TWO DROPS TWICE DAILY
     Route: 047
     Dates: end: 202310
  2. FRESHKOTE PRESERVATIVE FREE LUBRICATING EYE DROPS [Suspect]
     Active Substance: POLYVINYL ALCOHOL\POVIDONE
     Indication: Dry eye
     Dosage: ONE TO TWO DROPS TWICE DAILY
     Route: 047
     Dates: end: 202404
  3. SIMILASAN FOR INFLAMMATION OF THE MOUTH AND THROAT [Concomitant]
     Active Substance: HOMEOPATHICS
     Indication: Dry eye
     Route: 065

REACTIONS (2)
  - Vision blurred [Unknown]
  - Product dose omission issue [Unknown]

NARRATIVE: CASE EVENT DATE: 20231001
